FAERS Safety Report 4295319-1 (Version None)
Quarter: 2004Q1

REPORT INFORMATION
  Report Type: 
  Country: None (occurrence: None)
  Receive Date: 20040216
  Receipt Date: 20030602
  Transmission Date: 20041129
  Serious: Yes (Other)
  Sender: FDA-Public Use
  Company Number: US-GLAXOSMITHKLINE-A0411036A

PATIENT
  Age: 13 Year
  Sex: Male
  Weight: 54.1 kg

DRUGS (3)
  1. LAMICTAL [Suspect]
     Indication: IRRITABILITY
     Dosage: 100MG TWICE PER DAY
     Route: 048
     Dates: start: 20021120, end: 20030522
  2. STRATTERA [Concomitant]
     Indication: ATTENTION DEFICIT/HYPERACTIVITY DISORDER
     Dosage: 60MG IN THE MORNING
     Route: 048
     Dates: start: 20030116
  3. CELEXA [Concomitant]
     Indication: OPPOSITIONAL DEFIANT DISORDER
     Dosage: 40MG IN THE MORNING
     Route: 048
     Dates: start: 20011101

REACTIONS (6)
  - DERMATITIS BULLOUS [None]
  - LYMPHADENOPATHY [None]
  - PETECHIAE [None]
  - RASH ERYTHEMATOUS [None]
  - RASH PUSTULAR [None]
  - STEVENS-JOHNSON SYNDROME [None]
